FAERS Safety Report 8414682-0 (Version None)
Quarter: 2012Q2

REPORT INFORMATION
  Report Type: 
  Country: None (occurrence: None)
  Receive Date: 20120605
  Receipt Date: 20120528
  Transmission Date: 20120825
  Serious: Yes (Hospitalization)
  Sender: FDA-Public Use
  Company Number: JP-MERCK-1206USA00157

PATIENT
  Age: 71 Year
  Sex: Male

DRUGS (3)
  1. GLIMEPIRIDE [Concomitant]
     Indication: TYPE 2 DIABETES MELLITUS
     Route: 065
  2. JANUVIA [Suspect]
     Indication: TYPE 2 DIABETES MELLITUS
     Route: 048
  3. VOGLIBOSE [Concomitant]
     Indication: TYPE 2 DIABETES MELLITUS
     Route: 065

REACTIONS (4)
  - ABNORMAL BEHAVIOUR [None]
  - HEAD INJURY [None]
  - BLOOD GLUCOSE INCREASED [None]
  - NIGHTMARE [None]
